FAERS Safety Report 9437528 (Version 1)
Quarter: 2013Q3

REPORT INFORMATION
  Report Type: Spontaneous
  Country: US (occurrence: US)
  Receive Date: 20130802
  Receipt Date: 20130802
  Transmission Date: 20140515
  Serious: Yes (Other)
  Sender: FDA-Public Use
  Company Number: US-MYLANLABS-2013S1016819

PATIENT
  Age: 60 Year
  Sex: Male

DRUGS (9)
  1. ALPRAZOLAM TABLETS, USP [Suspect]
     Dates: start: 20130612
  2. KRISTALOSE [Concomitant]
  3. PROMETHAZINE [Concomitant]
  4. CIPROFLOXACIN [Concomitant]
  5. FISH OIL [Concomitant]
     Dosage: OMEGA 369
  6. MULTIVITAMIN [Concomitant]
  7. STOOL SOFTENER [Concomitant]
  8. MELATONIN [Concomitant]
  9. MILK THISTLE [Concomitant]

REACTIONS (3)
  - Hepatic failure [Not Recovered/Not Resolved]
  - Blood creatinine increased [Not Recovered/Not Resolved]
  - Gamma-glutamyltransferase abnormal [Not Recovered/Not Resolved]
